FAERS Safety Report 5502095-0 (Version None)
Quarter: 2007Q4

REPORT INFORMATION
  Report Type: 
  Country: None (occurrence: None)
  Receive Date: 20071019
  Receipt Date: 20070320
  Transmission Date: 20080405
  Serious: Yes (Other)
  Sender: FDA-Public Use
  Company Number: PHEH2006US12715

PATIENT
  Age: 92 Year
  Sex: Male

DRUGS (11)
  1. ZOMETA [Suspect]
     Indication: PROSTATE CANCER METASTATIC
     Dosage: 2 MG, INFUSION; 3 MG, INFUSION; 2 MG; 3 MG; 2 MG, INFUSION
     Dates: start: 20060413, end: 20060413
  2. ZOMETA [Suspect]
     Indication: PROSTATE CANCER METASTATIC
     Dosage: 2 MG, INFUSION; 3 MG, INFUSION; 2 MG; 3 MG; 2 MG, INFUSION
     Dates: start: 20060505, end: 20060505
  3. ZOMETA [Suspect]
     Indication: PROSTATE CANCER METASTATIC
     Dosage: 2 MG, INFUSION; 3 MG, INFUSION; 2 MG; 3 MG; 2 MG, INFUSION
     Dates: start: 20060601, end: 20060601
  4. ZOMETA [Suspect]
     Indication: PROSTATE CANCER METASTATIC
     Dosage: 2 MG, INFUSION; 3 MG, INFUSION; 2 MG; 3 MG; 2 MG, INFUSION
     Dates: start: 20060630, end: 20060630
  5. ZOMETA [Suspect]
     Indication: PROSTATE CANCER METASTATIC
     Dosage: 2 MG, INFUSION; 3 MG, INFUSION; 2 MG; 3 MG; 2 MG, INFUSION
     Dates: start: 20060831, end: 20060831
  6. ASPIRIN [Concomitant]
  7. COREG [Concomitant]
  8. ISOSORBIDE (ISOSORBIDE) [Concomitant]
  9. FUROSEMIDE [Concomitant]
  10. CASODEX [Concomitant]
  11. LIPITOR [Concomitant]

REACTIONS (17)
  - BLOOD CHLORIDE DECREASED [None]
  - BLOOD CREATININE INCREASED [None]
  - BLOOD GLUCOSE INCREASED [None]
  - BLOOD MAGNESIUM INCREASED [None]
  - BLOOD PHOSPHORUS INCREASED [None]
  - BLOOD POTASSIUM INCREASED [None]
  - BLOOD UREA INCREASED [None]
  - CARBON DIOXIDE INCREASED [None]
  - CREATININE RENAL CLEARANCE DECREASED [None]
  - CREATININE RENAL CLEARANCE INCREASED [None]
  - CREATININE URINE DECREASED [None]
  - DRUG INEFFECTIVE [None]
  - HAEMATOCRIT DECREASED [None]
  - HAEMOGLOBIN DECREASED [None]
  - PLATELET COUNT DECREASED [None]
  - RENAL IMPAIRMENT [None]
  - WHITE BLOOD CELL COUNT INCREASED [None]
